FAERS Safety Report 5799871-6 (Version None)
Quarter: 2008Q3

REPORT INFORMATION
  Report Type: 
  Country: None (occurrence: None)
  Receive Date: 20080703
  Receipt Date: 20080620
  Transmission Date: 20090109
  Serious: Yes (Other)
  Sender: FDA-Public Use
  Company Number: FR-NOVOPROD-276680

PATIENT
  Age: 12 Year
  Sex: Female

DRUGS (1)
  1. NORDITROPIN [Suspect]
     Indication: DRUG USE FOR UNKNOWN INDICATION
     Dosage: 3.2 MG, QD
     Dates: start: 20070612

REACTIONS (1)
  - HYPERTHYROIDISM [None]
